FAERS Safety Report 23231899 (Version 1)
Quarter: 2023Q4

REPORT INFORMATION
  Report Type: Spontaneous
  Country: US (occurrence: None)
  Receive Date: 20231126
  Receipt Date: 20231126
  Transmission Date: 20240110
  Serious: Yes (Life-Threatening, Other)
  Sender: FDA-Public Use
  Company Number: None

PATIENT
  Age: 52 Year
  Sex: Male
  Weight: 56.25 kg

DRUGS (14)
  1. REPATHA [Suspect]
     Active Substance: EVOLOCUMAB
     Indication: Blood cholesterol increased
     Dosage: OTHER QUANTITY : 2 INJECTION(S);?OTHER FREQUENCY : EVERY 2 WEEKS;?
     Route: 058
     Dates: start: 20231114, end: 20231114
  2. OMEPRAZOLE [Concomitant]
     Active Substance: OMEPRAZOLE
  3. BUSPIRONE [Concomitant]
     Active Substance: BUSPIRONE HYDROCHLORIDE
  4. METOPROLOL SUCCINATE [Concomitant]
     Active Substance: METOPROLOL SUCCINATE
  5. ASPIRIN [Concomitant]
     Active Substance: ASPIRIN
  6. AMLODIPINE BESYLATE [Concomitant]
     Active Substance: AMLODIPINE BESYLATE
  7. ATORVASTATIN [Concomitant]
     Active Substance: ATORVASTATIN
  8. CALCIUM [Concomitant]
     Active Substance: CALCIUM
  9. PANTOPRAZOLE SODIUM [Concomitant]
     Active Substance: PANTOPRAZOLE SODIUM
  10. diciofenac sodium 1% gel [Concomitant]
  11. ONDANSETRON [Concomitant]
     Active Substance: ONDANSETRON
  12. OMEGA 3 [Concomitant]
     Active Substance: CAPSAICIN
  13. TYLENOL [Concomitant]
     Active Substance: ACETAMINOPHEN
  14. prodentim tablet [Concomitant]

REACTIONS (5)
  - Urticaria [None]
  - Swelling face [None]
  - Syncope [None]
  - Anaphylactic reaction [None]
  - Pruritus [None]

NARRATIVE: CASE EVENT DATE: 20231114
